FAERS Safety Report 6441138-7 (Version None)
Quarter: 2009Q4

REPORT INFORMATION
  Report Type: 
  Country: None (occurrence: None)
  Receive Date: 20091116
  Receipt Date: 20091102
  Transmission Date: 20100525
  Serious: Yes (Hospitalization)
  Sender: FDA-Public Use
  Company Number: JP-SANOFI-AVENTIS-A01200910124

PATIENT
  Age: 74 Year
  Sex: Female

DRUGS (5)
  1. ZOLPIDEM TARTRATE [Suspect]
     Indication: INSOMNIA
     Dosage: UNIT DOSE: 5 MG
     Route: 048
     Dates: start: 20090904, end: 20090910
  2. CEFOPERAZONE SODIUM/SULBACTAM SODIUM [Concomitant]
     Indication: DRUG USE FOR UNKNOWN INDICATION
     Route: 065
     Dates: start: 20090904, end: 20090909
  3. NAFAMOSTAT MESILATE [Concomitant]
     Indication: DRUG USE FOR UNKNOWN INDICATION
     Route: 065
     Dates: start: 20090903, end: 20090909
  4. URSO 250 [Concomitant]
     Indication: AUTOIMMUNE HEPATITIS
  5. OLMETEC [Concomitant]
     Indication: HYPERTENSION

REACTIONS (1)
  - WHITE BLOOD CELL COUNT INCREASED [None]
